FAERS Safety Report 20343487 (Version 3)
Quarter: 2022Q1

REPORT INFORMATION
  Report Type: Spontaneous
  Country: US (occurrence: US)
  Receive Date: 20220118
  Receipt Date: 20220301
  Transmission Date: 20220423
  Serious: No
  Sender: FDA-Public Use
  Company Number: US-BEH-2022140336

PATIENT
  Sex: Female

DRUGS (17)
  1. HAEGARDA [Suspect]
     Active Substance: HUMAN C1-ESTERASE INHIBITOR
     Indication: Hereditary angioedema
     Dosage: 5220 INTERNATIONAL UNIT (10.44 ML), BIW
     Route: 058
     Dates: start: 20201229
  2. HAEGARDA [Suspect]
     Active Substance: HUMAN C1-ESTERASE INHIBITOR
     Indication: Prophylaxis
     Dosage: UNK
     Route: 065
  3. HAEGARDA [Suspect]
     Active Substance: HUMAN C1-ESTERASE INHIBITOR
     Dosage: UNK
     Route: 065
  4. HAEGARDA [Suspect]
     Active Substance: HUMAN C1-ESTERASE INHIBITOR
     Dosage: UNK
     Route: 065
  5. ACID REDUCER [RANITIDINE HYDROCHLORIDE] [Concomitant]
  6. DILTIAZEM [Concomitant]
     Active Substance: DILTIAZEM
  7. ERYTHROMYCIN STEARATE [Concomitant]
     Active Substance: ERYTHROMYCIN STEARATE
  8. FAMOTIDINE [Concomitant]
     Active Substance: FAMOTIDINE
  9. FLUOCINOLONE ACET [Concomitant]
  10. HYDROCODONE BITARTRATE AND ACETAMINOPHEN [Concomitant]
     Active Substance: ACETAMINOPHEN\HYDROCODONE BITARTRATE
  11. ICATIBANT [Concomitant]
     Active Substance: ICATIBANT ACETATE
  12. LIDOCAINE;PRILOCAINE [Concomitant]
  13. NICOTINE [Concomitant]
     Active Substance: NICOTINE
  14. SERTRALINE [Concomitant]
     Active Substance: SERTRALINE HYDROCHLORIDE
  15. NICOTINE [Concomitant]
     Active Substance: NICOTINE
  16. TRAZODONE [Concomitant]
     Active Substance: TRAZODONE HYDROCHLORIDE
  17. CHOLECALCIFEROL [Concomitant]
     Active Substance: CHOLECALCIFEROL

REACTIONS (7)
  - Gastrointestinal infection [Not Recovered/Not Resolved]
  - No adverse event [Unknown]
  - Device issue [Not Recovered/Not Resolved]
  - Product container issue [Not Recovered/Not Resolved]
  - Product preparation issue [Not Recovered/Not Resolved]
  - Dry skin [Not Recovered/Not Resolved]
  - Skin irritation [Not Recovered/Not Resolved]
